FAERS Safety Report 6017798-1 (Version None)
Quarter: 2008Q4

REPORT INFORMATION
  Report Type: 
  Country: None (occurrence: None)
  Receive Date: 20081223
  Receipt Date: 20081215
  Transmission Date: 20090506
  Serious: Yes (Hospitalization)
  Sender: FDA-Public Use
  Company Number: US-SANOFI-SYNTHELABO-A03200703029

PATIENT
  Sex: Male

DRUGS (2)
  1. AMBIEN CR [Suspect]
     Indication: INSOMNIA
     Route: 048
  2. AMBIEN CR [Suspect]
     Route: 048
     Dates: start: 20081120, end: 20081120

REACTIONS (5)
  - FALL [None]
  - GAIT DISTURBANCE [None]
  - HEAD INJURY [None]
  - LIMB INJURY [None]
  - PRESYNCOPE [None]
